FAERS Safety Report 17436823 (Version 10)
Quarter: 2020Q3

REPORT INFORMATION
  Report Type: Report from Study
  Country: US (occurrence: US)
  Receive Date: 20200219
  Receipt Date: 20200728
  Transmission Date: 20201102
  Serious: Yes (Hospitalization)
  Sender: FDA-Public Use
  Company Number: US-ACTELION-A-NJ2019-199402

PATIENT
  Age: 43 Year
  Sex: Female
  Weight: 47.62 kg

DRUGS (9)
  1. UPTRAVI [Suspect]
     Active Substance: SELEXIPAG
     Dosage: 1200 MCG, BID
     Route: 048
     Dates: start: 20200107
  2. UPTRAVI [Suspect]
     Active Substance: SELEXIPAG
     Dosage: 1200MCG IN THE AM AND 1400 MCG IN PM
     Route: 048
  3. WARFARIN [Concomitant]
     Active Substance: WARFARIN
  4. UPTRAVI [Suspect]
     Active Substance: SELEXIPAG
     Indication: PULMONARY ARTERIAL HYPERTENSION
     Dosage: 1000 MCG, BID
     Route: 048
  5. UPTRAVI [Suspect]
     Active Substance: SELEXIPAG
     Dosage: 1600 MCG, BID
     Route: 048
  6. OPSUMIT [Suspect]
     Active Substance: MACITENTAN
     Indication: PULMONARY ARTERIAL HYPERTENSION
     Dosage: 10 MG, QD
     Route: 048
  7. UPTRAVI [Suspect]
     Active Substance: SELEXIPAG
     Dosage: 1600 MCG, QAM
     Route: 048
  8. UPTRAVI [Suspect]
     Active Substance: SELEXIPAG
     Dosage: 1400 MCG, QAM
     Route: 048
  9. SILDENAFIL CITRATE. [Concomitant]
     Active Substance: SILDENAFIL CITRATE

REACTIONS (26)
  - Patent ductus arteriosus repair [Unknown]
  - Nocturnal dyspnoea [Unknown]
  - Condition aggravated [Unknown]
  - Malaise [Unknown]
  - Pneumonia [Unknown]
  - Poor peripheral circulation [Unknown]
  - Palpitations [Unknown]
  - Pain [Recovering/Resolving]
  - Dizziness [Unknown]
  - Unevaluable event [Unknown]
  - Urine output decreased [Unknown]
  - Hypotension [Unknown]
  - Diarrhoea [Unknown]
  - Nausea [Unknown]
  - Skin disorder [Unknown]
  - Frequent bowel movements [Unknown]
  - Peripheral swelling [Unknown]
  - Oxygen saturation decreased [Unknown]
  - Headache [Unknown]
  - Insomnia [Unknown]
  - Dyspnoea [Unknown]
  - Oedema [Unknown]
  - Product dose omission issue [Recovered/Resolved]
  - Alopecia [Unknown]
  - Fatigue [Unknown]
  - Vomiting [Unknown]

NARRATIVE: CASE EVENT DATE: 20191205
